FAERS Safety Report 25335824 (Version 1)
Quarter: 2025Q2

REPORT INFORMATION
  Report Type: Report from Study
  Country: FR (occurrence: FR)
  Receive Date: 20250520
  Receipt Date: 20250520
  Transmission Date: 20250717
  Serious: Yes (Other)
  Sender: MYLAN
  Company Number: FR-MYLANLABS-2025M1042543

PATIENT

DRUGS (12)
  1. ABACAVIR\LAMIVUDINE [Suspect]
     Active Substance: ABACAVIR\LAMIVUDINE
     Indication: HIV-2 infection
     Dosage: UNK, QD
  2. ABACAVIR\LAMIVUDINE [Suspect]
     Active Substance: ABACAVIR\LAMIVUDINE
     Indication: Multiple-drug resistance
  3. TENOFOVIR [Suspect]
     Active Substance: TENOFOVIR
     Indication: HIV-2 infection
  4. TENOFOVIR [Suspect]
     Active Substance: TENOFOVIR
     Indication: Multiple-drug resistance
  5. FOSCARNET [Suspect]
     Active Substance: FOSCARNET
     Indication: HIV-2 infection
  6. FOSCARNET [Suspect]
     Active Substance: FOSCARNET
     Indication: Multiple-drug resistance
  7. DARUNAVIR\RITONAVIR [Concomitant]
     Active Substance: DARUNAVIR\RITONAVIR
     Indication: HIV-2 infection
  8. DARUNAVIR\RITONAVIR [Concomitant]
     Active Substance: DARUNAVIR\RITONAVIR
     Indication: Multiple-drug resistance
  9. DOLUTEGRAVIR [Concomitant]
     Active Substance: DOLUTEGRAVIR
     Indication: HIV-2 infection
     Dosage: 50 MILLIGRAM, QD
  10. DOLUTEGRAVIR [Concomitant]
     Active Substance: DOLUTEGRAVIR
     Indication: Multiple-drug resistance
  11. ATAZANAVIR [Concomitant]
     Active Substance: ATAZANAVIR
     Indication: HIV-2 infection
     Dosage: 150 MILLIGRAM, QD
  12. ATAZANAVIR [Concomitant]
     Active Substance: ATAZANAVIR
     Indication: Multiple-drug resistance

REACTIONS (1)
  - Drug ineffective [Unknown]
